FAERS Safety Report 10540987 (Version 1)
Quarter: 2014Q4

REPORT INFORMATION
  Report Type: Spontaneous
  Country: US (occurrence: None)
  Receive Date: 20141010
  Receipt Date: 20141010
  Transmission Date: 20150529
  Serious: No
  Sender: FDA-Public Use
  Company Number: 163-POMAL-14081018

PATIENT
  Age: 66 Year
  Sex: Female

DRUGS (9)
  1. VITAMIN B-6 (PYRIDOXINE HYDROCHLORIDE) (UNKNOWN) [Concomitant]
  2. VITAMIN D3 (COLECALCIFEROL) (UNKNOWN) [Concomitant]
  3. FISH OIL (FISH OIL) (UNKNOWN) [Concomitant]
  4. AMLODIPINE BESYLATE (AMLODIPINE BESILATE) (UNKNOWN [Concomitant]
  5. POMALYST [Suspect]
     Active Substance: POMALIDOMIDE
     Indication: PLASMA CELL MYELOMA
     Dosage: 4 MG, 21 IN 21 D, PO
     Route: 048
     Dates: start: 20130215
  6. DIPHENOXYLATE-ATROPINE (LOMOTIL) (UNKNOWN) [Concomitant]
  7. ACETAMINOPHEN (PARACETAMOL) (UNKNOWN) (PARACETAMOL) [Concomitant]
     Active Substance: ACETAMINOPHEN
  8. ATORVASTATIN CALCIUM (ATORVASTATIN CALCIUM) (UNKNOWN) [Concomitant]
  9. HYDROCODONE-ACETAMINOPHEN (REMEDEINE) (UNKNOWN) [Concomitant]

REACTIONS (2)
  - Laryngitis [None]
  - Hypotension [None]

NARRATIVE: CASE EVENT DATE: 20140804
